FAERS Safety Report 18728590 (Version 1)
Quarter: 2021Q1

REPORT INFORMATION
  Report Type: Other
  Country: US (occurrence: US)
  Receive Date: 20210112
  Receipt Date: 20210112
  Transmission Date: 20210419
  Serious: Yes (Other)
  Sender: FDA-Public Use
  Company Number: US-ROCHE-2738764

PATIENT
  Sex: Female

DRUGS (6)
  1. VENCLEXTA [Suspect]
     Active Substance: VENETOCLAX
     Indication: CHRONIC LYMPHOCYTIC LEUKAEMIA
     Dosage: TAKE 4 TABLETS BY MOUTH EVERY DAY WITH FOOF AND WATER AT THE SAME TIME EACH DAY.
     Route: 048
     Dates: start: 202007
  2. GAZYVA [Suspect]
     Active Substance: OBINUTUZUMAB
     Dosage: DATE OF SERVICE: 28/DEC/2020
     Route: 065
  3. VENCLEXTA [Suspect]
     Active Substance: VENETOCLAX
     Indication: IRON DEFICIENCY ANAEMIA
  4. GAZYVA [Suspect]
     Active Substance: OBINUTUZUMAB
     Indication: CHRONIC LYMPHOCYTIC LEUKAEMIA
     Route: 065
  5. VENCLEXTA [Suspect]
     Active Substance: VENETOCLAX
     Indication: LYMPHOMA
  6. VENCLEXTA [Suspect]
     Active Substance: VENETOCLAX
     Indication: TUMOUR PAIN

REACTIONS (3)
  - Recurrent cancer [Unknown]
  - Lymphadenopathy [Unknown]
  - Initial insomnia [Unknown]
